FAERS Safety Report 9292618 (Version 1)
Quarter: 2013Q2

REPORT INFORMATION
  Report Type: Spontaneous
  Country: BE (occurrence: BE)
  Receive Date: 20130516
  Receipt Date: 20130516
  Transmission Date: 20140414
  Serious: Yes (Hospitalization)
  Sender: FDA-Public Use
  Company Number: BE-ASTRAZENECA-2013SE27749

PATIENT
  Age: 70 Month
  Sex: Female
  Weight: 13 kg

DRUGS (2)
  1. MERONEM [Suspect]
     Route: 042
     Dates: start: 20130414, end: 20130418
  2. VALPROIC ACID [Interacting]
     Indication: CONVULSION
     Route: 048
     Dates: start: 20130414

REACTIONS (3)
  - Drug interaction [Recovered/Resolved]
  - Drug level decreased [Recovered/Resolved]
  - Convulsion [Recovered/Resolved]
